FAERS Safety Report 12530223 (Version 2)
Quarter: 2016Q3

REPORT INFORMATION
  Report Type: Spontaneous
  Country: US (occurrence: US)
  Receive Date: 20160706
  Receipt Date: 20160802
  Transmission Date: 20161109
  Serious: No
  Sender: FDA-Public Use
  Company Number: US-PFIZER INC-2016291428

PATIENT
  Age: 65 Year
  Sex: Male
  Weight: 94 kg

DRUGS (2)
  1. CADUET [Suspect]
     Active Substance: AMLODIPINE BESYLATE\ATORVASTATIN CALCIUM
     Indication: HYPERTENSION
     Dosage: [AMLODIPINE BESILATE 10 MICROGRAM/ATORVASTATIN CALCIUM 10 MICROGRAM] ONE TABLET BY MOUTH ONCE A DAY
     Route: 048
  2. CADUET [Suspect]
     Active Substance: AMLODIPINE BESYLATE\ATORVASTATIN CALCIUM
     Indication: BLOOD CHOLESTEROL INCREASED

REACTIONS (1)
  - Blood cholesterol increased [Recovered/Resolved]

NARRATIVE: CASE EVENT DATE: 201605
